FAERS Safety Report 23474431 (Version 1)
Quarter: 2024Q1

REPORT INFORMATION
  Report Type: Report from Study
  Country: US (occurrence: US)
  Receive Date: 20240204
  Receipt Date: 20240204
  Transmission Date: 20240410
  Serious: Yes (Hospitalization, Other)
  Sender: FDA-Public Use
  Company Number: US-EXELIXIS-CABO-23060936

PATIENT
  Age: 65 Year
  Sex: Female

DRUGS (12)
  1. CABOMETYX [Suspect]
     Active Substance: CABOZANTINIB S-MALATE
     Indication: Thyroid cancer
     Dosage: 20 MG, QD
     Dates: start: 20230127, end: 20230317
  2. CABOMETYX [Suspect]
     Active Substance: CABOZANTINIB S-MALATE
     Dosage: 20 MG, QD
     Dates: start: 202304
  3. CABOMETYX [Suspect]
     Active Substance: CABOZANTINIB S-MALATE
     Dosage: 40 MG
  4. GABAPENTIN [Concomitant]
     Active Substance: GABAPENTIN
  5. VITAMIN D NOS [Concomitant]
     Active Substance: VITAMIN D NOS
  6. LEVOTHYROXINE [Concomitant]
     Active Substance: LEVOTHYROXINE\LEVOTHYROXINE SODIUM
  7. HYDROMORPHONE [Concomitant]
     Active Substance: HYDROMORPHONE
  8. TRAMADOL [Concomitant]
     Active Substance: TRAMADOL\TRAMADOL HYDROCHLORIDE
  9. MORPHINE [Concomitant]
     Active Substance: MORPHINE
  10. FAMOTIDINE [Concomitant]
     Active Substance: FAMOTIDINE
  11. TYLENOL [Concomitant]
     Active Substance: ACETAMINOPHEN
  12. MELATONIN [Concomitant]
     Active Substance: MELATONIN

REACTIONS (14)
  - Wound dehiscence [Unknown]
  - Postoperative wound infection [Unknown]
  - Post procedural haemorrhage [Unknown]
  - Back pain [Recovering/Resolving]
  - Metastases to bone [Recovering/Resolving]
  - Haemoglobin decreased [Recovered/Resolved]
  - Lip dry [Recovering/Resolving]
  - Nausea [Recovered/Resolved]
  - Dry mouth [Unknown]
  - Dry skin [Recovering/Resolving]
  - Urinary tract infection [Recovered/Resolved]
  - Blood pressure fluctuation [Recovered/Resolved]
  - Epistaxis [Unknown]
  - Off label use [Unknown]

NARRATIVE: CASE EVENT DATE: 20230206
